FAERS Safety Report 7524490-0 (Version None)
Quarter: 2011Q2

REPORT INFORMATION
  Report Type: 
  Country: None (occurrence: None)
  Receive Date: 20110601
  Receipt Date: 20110601
  Transmission Date: 20111010
  Serious: No
  Sender: FDA-Public Use
  Company Number: None

PATIENT
  Sex: Female

DRUGS (1)
  1. STELARA [Suspect]
     Indication: PSORIASIS
     Dosage: 45MG EVERY 10 WEEKS SUBCUTANEOUSLY
     Route: 058
     Dates: start: 20101101

REACTIONS (1)
  - HEADACHE [None]
